FAERS Safety Report 20137034 (Version 1)
Quarter: 2021Q4

REPORT INFORMATION
  Report Type: Spontaneous
  Country: FR (occurrence: FR)
  Receive Date: 20211201
  Receipt Date: 20211201
  Transmission Date: 20220303
  Serious: Yes (Hospitalization)
  Sender: FDA-Public Use
  Company Number: None

PATIENT
  Age: 61 Year
  Sex: Male
  Weight: 49 kg

DRUGS (42)
  1. CARBOPLATIN [Suspect]
     Active Substance: CARBOPLATIN
     Indication: Lung adenocarcinoma stage IV
     Dosage: 530 MILLIGRAM, CYCLE (530 MILLIGRAM, CURE 1)
     Dates: start: 20210409
  2. CARBOPLATIN [Suspect]
     Active Substance: CARBOPLATIN
     Dosage: 510 MILLIGRAM, CYCLE (510 MILLIGRAM, CURE 2)
     Dates: start: 20210430
  3. CARBOPLATIN [Suspect]
     Active Substance: CARBOPLATIN
     Dosage: 580 MILLIGRAM, CYCLE (580 MILLIGRAM, CURE 3)/START DATE:25-JUN-2021
  4. CARBOPLATIN [Suspect]
     Active Substance: CARBOPLATIN
     Dosage: UNK
     Dates: start: 20210723
  5. CARBOPLATIN [Suspect]
     Active Substance: CARBOPLATIN
     Dosage: UNK
     Dates: start: 20210625
  6. RIFATER [Suspect]
     Active Substance: ISONIAZID\PYRAZINAMIDE\RIFAMPIN
     Indication: Tuberculosis
     Dosage: 4 DOSAGE FORM, QD
     Dates: start: 20210420, end: 20210515
  7. RIFATER [Suspect]
     Active Substance: ISONIAZID\PYRAZINAMIDE\RIFAMPIN
     Dosage: 4 DOSAGE FORM, QD
     Dates: start: 20210630, end: 20210715
  8. ALIMTA [Suspect]
     Active Substance: PEMETREXED DISODIUM
     Indication: Lung adenocarcinoma stage IV
     Dosage: 700 MILLIGRAM, CYCLE (700 MILLIGRAM, CURE 1)
     Dates: start: 20210409
  9. ALIMTA [Suspect]
     Active Substance: PEMETREXED DISODIUM
     Dosage: 550 MILLIGRAM, CYCLE (550 MILLIGRAM, CURE 2)
     Dates: start: 20210430
  10. ALIMTA [Suspect]
     Active Substance: PEMETREXED DISODIUM
     Dosage: 700 MILLIGRAM, CYCLE (700 MILLIGRAM, CURE 3)/START DATE:25-JUN-2021
  11. ALIMTA [Suspect]
     Active Substance: PEMETREXED DISODIUM
     Dosage: UNK
     Dates: start: 20210723
  12. ALIMTA [Suspect]
     Active Substance: PEMETREXED DISODIUM
     Dosage: UNK
     Dates: start: 20210625
  13. PEMBROLIZUMAB [Suspect]
     Active Substance: PEMBROLIZUMAB
     Indication: Lung adenocarcinoma stage IV
     Dosage: 200 MILLIGRAM, CYCLE (200 MILLIGRAM, CURE 1)
     Dates: start: 20210409
  14. PEMBROLIZUMAB [Suspect]
     Active Substance: PEMBROLIZUMAB
     Dosage: 200 MILLIGRAM, CYCLE (200 MILLIGRAM, CURE 2)
     Dates: start: 20210430
  15. PEMBROLIZUMAB [Suspect]
     Active Substance: PEMBROLIZUMAB
     Dosage: 200 MILLIGRAM, CYCLE (200 MILLIGRAM, CURE 3)/START DATE:25-JUN-2021
  16. PEMBROLIZUMAB [Suspect]
     Active Substance: PEMBROLIZUMAB
     Dosage: UNK
     Dates: start: 20210723
  17. PEMBROLIZUMAB [Suspect]
     Active Substance: PEMBROLIZUMAB
     Dosage: UNK
     Dates: start: 20210625
  18. ALBUTEROL [Concomitant]
     Active Substance: ALBUTEROL
     Dosage: UNK
  19. TIMOLOL MALEATE [Concomitant]
     Active Substance: TIMOLOL MALEATE
     Dosage: UNK
  20. VITAMIN B6 [Concomitant]
     Active Substance: PYRIDOXINE HYDROCHLORIDE
     Dosage: UNK
  21. ONDANSETRON [Concomitant]
     Active Substance: ONDANSETRON
     Dosage: UNK
  22. METFORMINE                         /00082701/ [Concomitant]
     Dosage: UNK
  23. MODERNA COVID-19 VACCINE [Concomitant]
     Active Substance: ELASOMERAN
     Dosage: UNK
  24. OXYCODONE HYDROCHLORIDE [Concomitant]
     Active Substance: OXYCODONE HYDROCHLORIDE
     Dosage: UNK
  25. ETHAMBUTOL HYDROCHLORIDE [Concomitant]
     Active Substance: ETHAMBUTOL HYDROCHLORIDE
     Indication: Tuberculosis
     Dosage: 500 MILLIGRAM, QD
     Dates: start: 20210420, end: 20210515
  26. OXYCONTIN [Concomitant]
     Active Substance: OXYCODONE HYDROCHLORIDE
     Dosage: UNK
  27. ACETAMINOPHEN [Concomitant]
     Active Substance: ACETAMINOPHEN
     Dosage: UNK
  28. MOVICOL                            /01749801/ [Concomitant]
     Dosage: UNK
  29. ATORVASTATINE                      /01326101/ [Concomitant]
     Dosage: UNK
  30. ETHAMBUTOL HYDROCHLORIDE [Concomitant]
     Active Substance: ETHAMBUTOL HYDROCHLORIDE
     Dosage: UNK
     Route: 048
     Dates: start: 20210420, end: 20210515
  31. RIFAMPIN [Concomitant]
     Active Substance: RIFAMPIN
     Dosage: UNK
     Dates: start: 20210630, end: 20210712
  32. RIFAMPIN [Concomitant]
     Active Substance: RIFAMPIN
     Dosage: UNK
     Route: 048
     Dates: start: 20210420, end: 20210515
  33. LEVOFLOXACINE                      /01278901/ [Concomitant]
     Dosage: UNK
     Dates: start: 20210727, end: 20210808
  34. LEVOFLOXACINE                      /01278901/ [Concomitant]
     Dosage: UNK
     Dates: start: 20210630, end: 20210712
  35. LEVOFLOXACINE                      /01278901/ [Concomitant]
     Dosage: UNK
     Dates: start: 20210812
  36. BEDAQUILINE [Concomitant]
     Active Substance: BEDAQUILINE
     Dosage: UNK
     Dates: start: 20210812
  37. BEDAQUILINE [Concomitant]
     Active Substance: BEDAQUILINE
     Dosage: UNK
     Dates: start: 20210727, end: 20210805
  38. ISONIAZID [Suspect]
     Active Substance: ISONIAZID
     Indication: Tuberculosis
     Dosage: UNK
     Dates: start: 20210808, end: 20210810
  39. ISONIAZID [Suspect]
     Active Substance: ISONIAZID
     Dosage: UNK
     Dates: start: 20210702, end: 20210712
  40. ISONIAZID [Suspect]
     Active Substance: ISONIAZID
     Dosage: UNK
     Dates: start: 20210727, end: 20210805
  41. ISONIAZID [Suspect]
     Active Substance: ISONIAZID
     Dosage: UNK
     Dates: start: 20210420, end: 20210514
  42. PYRAZINAMIDE [Concomitant]
     Active Substance: PYRAZINAMIDE
     Dosage: UNK
     Dates: start: 20210420, end: 20210515

REACTIONS (2)
  - Haemophagocytic lymphohistiocytosis [Recovered/Resolved]
  - Mixed liver injury [Recovering/Resolving]

NARRATIVE: CASE EVENT DATE: 20210514
